FAERS Safety Report 4422452-3 (Version None)
Quarter: 2004Q3

REPORT INFORMATION
  Report Type: 
  Country: None (occurrence: None)
  Receive Date: 20040806
  Receipt Date: 20040714
  Transmission Date: 20050211
  Serious: Yes (Hospitalization)
  Sender: FDA-Public Use
  Company Number: USA040772574

PATIENT
  Age: 79 Year
  Sex: Female
  Weight: 53 kg

DRUGS (2)
  1. FORTEO [Suspect]
     Indication: OSTEOPOROSIS
     Dosage: UNK
     Route: 065
     Dates: start: 20040101, end: 20040101
  2. METHOTREXATE [Concomitant]

REACTIONS (4)
  - ABDOMINAL PAIN UPPER [None]
  - HEPATIC ENZYME INCREASED [None]
  - PAIN [None]
  - VIRAL INFECTION [None]
